FAERS Safety Report 6999609-0 (Version None)
Quarter: 2010Q3

REPORT INFORMATION
  Report Type: 
  Country: None (occurrence: None)
  Receive Date: 20100920
  Receipt Date: 20100712
  Transmission Date: 20110219
  Serious: No
  Sender: FDA-Public Use
  Company Number: US-ASTRAZENECA-2010SE32349

PATIENT
  Age: 74 Year
  Sex: Female
  Weight: 61.2 kg

DRUGS (5)
  1. SEROQUEL XR [Suspect]
     Indication: INSOMNIA
     Route: 048
     Dates: start: 20100707
  2. SEROQUEL XR [Suspect]
     Indication: STRESS
     Route: 048
     Dates: start: 20100707
  3. NORCO [Concomitant]
  4. SOMA [Concomitant]
  5. DARVOCET [Concomitant]

REACTIONS (2)
  - JOINT SWELLING [None]
  - OEDEMA PERIPHERAL [None]
